FAERS Safety Report 4618374-5 (Version None)
Quarter: 2005Q1

REPORT INFORMATION
  Report Type: 
  Country: None (occurrence: None)
  Receive Date: 20050323
  Receipt Date: 20050311
  Transmission Date: 20050727
  Serious: Yes (Hospitalization, Other)
  Sender: FDA-Public Use
  Company Number: 2005038043

PATIENT
  Age: 23 Year
  Weight: 70 kg

DRUGS (1)
  1. DEPO-PROVERA [Suspect]
     Indication: CONTRACEPTION
     Dosage: (ONCE INTERVAL:  EVERY 3 MONTHS), INTRAMUSCULAR
     Route: 030

REACTIONS (1)
  - TUBERCULOSIS [None]
